FAERS Safety Report 8790777 (Version 1)
Quarter: 2012Q4

REPORT INFORMATION
  Report Type: Spontaneous
  Country: US (occurrence: None)
  Receive Date: 20120906
  Receipt Date: 20120906
  Transmission Date: 20130627
  Serious: Yes (Life-Threatening)
  Sender: FDA-Public Use
  Company Number: 100201-000204

PATIENT
  Age: 22 Year
  Sex: Male

DRUGS (3)
  1. PROACTIV RENEWING CLEANSER [Suspect]
     Indication: ACNE
     Route: 061
     Dates: start: 2007, end: 20080717
  2. PROACTIV REPAIRING TREATMENT [Suspect]
     Indication: ACNE
     Route: 061
     Dates: start: 200703, end: 20080717
  3. PROACTIV SPF 15 MOISTURIZER [Suspect]
     Indication: ACNE
     Route: 061
     Dates: start: 200703, end: 20080717

REACTIONS (6)
  - Anaphylactic reaction [None]
  - Urticaria [None]
  - Pruritus [None]
  - Urticaria [None]
  - Throat tightness [None]
  - Dyspnoea [None]
